FAERS Safety Report 8795194 (Version 1)
Quarter: 2012Q4

REPORT INFORMATION
  Report Type: 
  Country: US (occurrence: US)
  Receive Date: 20120917
  Receipt Date: 20120917
  Transmission Date: 20130627
  Serious: Yes (Death)
  Sender: FDA-Public Use
  Company Number: US-ROCHE-1128357

PATIENT
  Age: 55 Year
  Sex: Female

DRUGS (4)
  1. AVASTIN [Suspect]
     Indication: BREAST CANCER FEMALE
     Route: 065
     Dates: start: 20060424
  2. AVASTIN [Suspect]
     Route: 065
     Dates: start: 20060508
  3. AVASTIN [Suspect]
     Route: 065
     Dates: start: 20060522
  4. AVASTIN [Suspect]
     Route: 065
     Dates: start: 20060605

REACTIONS (1)
  - Death [Fatal]
